FAERS Safety Report 5352138-2 (Version None)
Quarter: 2007Q2

REPORT INFORMATION
  Report Type: 
  Country: None (occurrence: None)
  Receive Date: 20070607
  Receipt Date: 20070529
  Transmission Date: 20071010
  Serious: Yes (Other)
  Sender: FDA-Public Use
  Company Number: 2007322521

PATIENT
  Age: 78 Year
  Sex: Male
  Weight: 87.5 kg

DRUGS (1)
  1. ROGAINE [Suspect]
     Indication: ALOPECIA
     Dosage: RECOMMENDED DOSAGE TWICE A DAY (2 IN 1 D), TOPICAL
     Route: 061
     Dates: end: 20070528

REACTIONS (2)
  - HYPERKERATOSIS [None]
  - TINEA INFECTION [None]
